FAERS Safety Report 19397522 (Version 1)
Quarter: 2021Q2

REPORT INFORMATION
  Report Type: Spontaneous
  Country: US (occurrence: US)
  Receive Date: 20210610
  Receipt Date: 20210610
  Transmission Date: 20210717
  Serious: No
  Sender: FDA-Public Use
  Company Number: US-GLAXOSMITHKLINE-US2021118474

PATIENT
  Age: 66 Year
  Sex: Female
  Weight: 251.74 kg

DRUGS (2)
  1. ADVAIR DISKUS [Suspect]
     Active Substance: FLUTICASONE PROPIONATE\SALMETEROL XINAFOATE
     Indication: CHRONIC OBSTRUCTIVE PULMONARY DISEASE
     Dosage: 1 PUFF(S), BID, IN THE MORNING AND EVENING APPROXIMATELY 12 HOURS APART.
     Route: 055
     Dates: start: 2006
  2. VENTOLIN [Suspect]
     Active Substance: ALBUTEROL SULFATE
     Indication: CHRONIC OBSTRUCTIVE PULMONARY DISEASE
     Dosage: 2 PUFF(S), 2 PUFFS BY MOUTH EVERY 4 TO 6 HOURS AS NEEDED
     Route: 055
     Dates: start: 2006

REACTIONS (7)
  - Body temperature increased [Unknown]
  - Sleep disorder [Unknown]
  - Bronchitis [Not Recovered/Not Resolved]
  - Chest pain [Unknown]
  - Product dose omission issue [Unknown]
  - Productive cough [Unknown]
  - Respiration abnormal [Unknown]

NARRATIVE: CASE EVENT DATE: 202105
